FAERS Safety Report 5696849-8 (Version None)
Quarter: 2008Q2

REPORT INFORMATION
  Report Type: 
  Country: None (occurrence: None)
  Receive Date: 20080408
  Receipt Date: 20070713
  Transmission Date: 20081010
  Serious: Yes (Other)
  Sender: FDA-Public Use
  Company Number: US-BAYER-US-2006-038420

PATIENT
  Age: 34 Year
  Sex: Female
  Weight: 81 kg

DRUGS (3)
  1. YASMIN [Suspect]
     Indication: ORAL CONTRACEPTION
     Route: 048
     Dates: start: 20050101, end: 20060901
  2. FLEXERIL [Concomitant]
  3. VOLTAREN [Concomitant]

REACTIONS (18)
  - ARRHYTHMIA [None]
  - BLINDNESS UNILATERAL [None]
  - BLOOD POTASSIUM INCREASED [None]
  - BRADYPHRENIA [None]
  - BRONCHITIS [None]
  - CARDIAC MURMUR [None]
  - CHEST PAIN [None]
  - DEHYDRATION [None]
  - DYSPNOEA [None]
  - EAR CONGESTION [None]
  - EAR DISCOMFORT [None]
  - EAR PAIN [None]
  - FATIGUE [None]
  - FUNGAL INFECTION [None]
  - OTOTOXICITY [None]
  - POLLAKIURIA [None]
  - SINUSITIS [None]
  - WEIGHT DECREASED [None]
